FAERS Safety Report 20137837 (Version 1)
Quarter: 2021Q4

REPORT INFORMATION
  Report Type: Spontaneous
  Country: None (occurrence: US)
  Receive Date: 20211202
  Receipt Date: 20211202
  Transmission Date: 20220304
  Serious: No
  Sender: FDA-Public Use
  Company Number: US-Appco Pharma LLC-2122574

PATIENT
  Age: 60 Year
  Sex: Male
  Weight: 73 kg

DRUGS (5)
  1. HYDROXYCHLOROQUINE SULFATE [Suspect]
     Active Substance: HYDROXYCHLOROQUINE SULFATE
     Indication: Rheumatoid arthritis
     Route: 065
     Dates: start: 201911
  2. SIMVASTATIN [Concomitant]
     Active Substance: SIMVASTATIN
     Route: 065
  3. METFORMIN [Concomitant]
     Active Substance: METFORMIN HYDROCHLORIDE
     Route: 065
  4. TIMOLOL [Concomitant]
     Active Substance: TIMOLOL
     Route: 065
  5. ZYRTEC [Concomitant]
     Active Substance: CETIRIZINE HYDROCHLORIDE
     Route: 065

REACTIONS (2)
  - Drug ineffective [Unknown]
  - Musculoskeletal stiffness [Unknown]
